FAERS Safety Report 6374789-9 (Version None)
Quarter: 2009Q3

REPORT INFORMATION
  Report Type: 
  Country: None (occurrence: None)
  Receive Date: 20090924
  Receipt Date: 20090917
  Transmission Date: 20100115
  Serious: Yes (Death)
  Sender: FDA-Public Use
  Company Number: US-GILEAD-2009-0023253

PATIENT
  Sex: Male
  Weight: 93.524 kg

DRUGS (13)
  1. LETAIRIS [Suspect]
     Indication: PULMONARY ARTERIAL HYPERTENSION
     Route: 048
     Dates: start: 20080502
  2. REVATIO [Concomitant]
  3. SPIRIVA [Concomitant]
  4. LASIX [Concomitant]
  5. LISINOPRIL [Concomitant]
  6. BACLOFEN [Concomitant]
  7. LEVOXYL [Concomitant]
  8. LEXAPRO [Concomitant]
  9. TYLENOL W/ CODEINE [Concomitant]
  10. NEXIUM [Concomitant]
  11. FISH OIL [Concomitant]
  12. ASPIRIN [Concomitant]
  13. MULTI-VITAMIN [Concomitant]

REACTIONS (1)
  - DISEASE PROGRESSION [None]
